FAERS Safety Report 6551344-9 (Version None)
Quarter: 2010Q1

REPORT INFORMATION
  Report Type: 
  Country: None (occurrence: None)
  Receive Date: 20100126
  Receipt Date: 20100113
  Transmission Date: 20100710
  Serious: Yes (Hospitalization)
  Sender: FDA-Public Use
  Company Number: US-BAYER-201011116NA

PATIENT
  Sex: Female

DRUGS (1)
  1. BETASERON [Suspect]
     Indication: MULTIPLE SCLEROSIS
     Route: 058

REACTIONS (4)
  - ABASIA [None]
  - FATIGUE [None]
  - MULTIPLE SCLEROSIS [None]
  - VERTIGO [None]
